FAERS Safety Report 9038257 (Version 1)
Quarter: 2013Q1

REPORT INFORMATION
  Report Type: Spontaneous
  Country: US (occurrence: US)
  Receive Date: 20130129
  Receipt Date: 20130129
  Transmission Date: 20140127
  Serious: No
  Sender: FDA-Public Use
  Company Number: US-GLAXOSMITHKLINE-A0997351A

PATIENT
  Age: 33 Year
  Sex: Male
  Weight: 70.5 kg

DRUGS (24)
  1. WELLBUTRIN [Suspect]
     Route: 065
  2. NICOTINE [Suspect]
     Indication: SMOKING CESSATION THERAPY
     Route: 062
  3. NICOTINE [Suspect]
     Indication: SMOKING CESSATION THERAPY
     Route: 065
  4. CHANTIX [Concomitant]
     Indication: SMOKING CESSATION THERAPY
     Dosage: 1MG TWICE PER DAY
  5. TESTOSTERONE [Concomitant]
     Dosage: 400MG PER DAY
  6. SAIZEN [Concomitant]
     Dosage: 8.8MG TWICE PER DAY
  7. NEURONTIN [Concomitant]
     Indication: ANXIETY
     Dosage: 400MG FOUR TIMES PER DAY
     Dates: start: 2005
  8. VIAGRA [Concomitant]
     Indication: ERECTILE DYSFUNCTION
     Dosage: 100MG AS REQUIRED
  9. NICOTROL INHALER [Concomitant]
     Indication: SMOKING CESSATION THERAPY
  10. CARDIZEM [Concomitant]
     Dosage: 60MG PER DAY
  11. COREG [Concomitant]
     Dosage: 3.125MG TWICE PER DAY
  12. LOVAZA [Concomitant]
     Dosage: 4G PER DAY
  13. COUMADIN [Concomitant]
     Dosage: 10MG TWICE PER DAY
  14. PROAIR HFA [Concomitant]
  15. CRESTOR [Concomitant]
     Dosage: 10MG TWICE PER DAY
  16. MARINOL [Concomitant]
     Dosage: 10MG TWICE PER DAY
  17. LOPRESSOR [Concomitant]
     Dosage: 25MG TWICE PER DAY
  18. PROTONIX [Concomitant]
     Dosage: 40MG PER DAY
  19. PLAVIX [Concomitant]
     Dosage: 75MG PER DAY
  20. CYMBALTA [Concomitant]
     Dosage: 30MG TWICE PER DAY
  21. EFFEXOR [Concomitant]
     Dosage: 75MG THREE TIMES PER DAY
  22. NITROGLYCERIN [Concomitant]
     Indication: CHEST PAIN
  23. CLONIDINE [Concomitant]
     Dosage: .3MG THREE TIMES PER DAY
  24. BYSTOLIC [Concomitant]

REACTIONS (1)
  - Drug ineffective [Unknown]
